FAERS Safety Report 5659114-0 (Version None)
Quarter: 2008Q1

REPORT INFORMATION
  Report Type: 
  Country: None (occurrence: None)
  Receive Date: 20080219
  Receipt Date: 20071129
  Transmission Date: 20080703
  Serious: No
  Sender: FDA-Public Use
  Company Number: WAES 0705USA02686

PATIENT
  Age: 68 Year
  Sex: Female

DRUGS (3)
  1. JANUVIA [Suspect]
     Indication: TYPE 2 DIABETES MELLITUS
     Dosage: 100 MG/DAILY/PO
     Route: 048
     Dates: start: 20070216, end: 20070514
  2. ASMANEX TWISTHALER [Concomitant]
  3. SPIRIVA [Concomitant]

REACTIONS (5)
  - ABDOMINAL PAIN [None]
  - BACK PAIN [None]
  - FLANK PAIN [None]
  - GLYCOSYLATED HAEMOGLOBIN DECREASED [None]
  - WRONG TECHNIQUE IN DRUG USAGE PROCESS [None]
